FAERS Safety Report 22115439 (Version 1)
Quarter: 2023Q1

REPORT INFORMATION
  Report Type: Spontaneous
  Country: US (occurrence: None)
  Receive Date: 20230318
  Receipt Date: 20230318
  Transmission Date: 20230418
  Serious: Yes (Hospitalization, Disabling)
  Sender: FDA-Public Use
  Company Number: None

PATIENT
  Age: 18 Year
  Sex: Male
  Weight: 63 kg

DRUGS (1)
  1. MONTELUKAST [Suspect]
     Active Substance: MONTELUKAST SODIUM
     Indication: Multiple allergies
     Dosage: OTHER QUANTITY : 90 TABLET(S);?FREQUENCY : AT BEDTIME;?
     Dates: start: 20210222, end: 20210314

REACTIONS (9)
  - Neuropsychiatric symptoms [None]
  - Adverse drug reaction [None]
  - Suicidal ideation [None]
  - Abnormal behaviour [None]
  - Anger [None]
  - Intentional self-injury [None]
  - Depression [None]
  - Nightmare [None]
  - Anxiety [None]

NARRATIVE: CASE EVENT DATE: 20210302
